FAERS Safety Report 11054742 (Version 1)
Quarter: 2015Q2

REPORT INFORMATION
  Report Type: Spontaneous
  Country: DK (occurrence: DK)
  Receive Date: 20150422
  Receipt Date: 20150422
  Transmission Date: 20150821
  Serious: Yes (Other)
  Sender: FDA-Public Use
  Company Number: DK-CIPLA LTD.-2015DK03163

PATIENT

DRUGS (4)
  1. EPIRUBICIN [Suspect]
     Active Substance: EPIRUBICIN
     Dosage: 50 MG/M2 ON DAY 1 EVERY 3WEEKS
     Route: 065
  2. CAPEGARD [Suspect]
     Active Substance: CAPECITABINE
     Dosage: 500 MG/M2, BID
     Route: 065
  3. OXALIPLATIN. [Suspect]
     Active Substance: OXALIPLATIN
     Dosage: 130 MG/M2, ON DAY 1 EVERY 3WEEKS
     Route: 065
  4. FLUOROURACIL. [Concomitant]
     Active Substance: FLUOROURACIL
     Dosage: 500 MG/M2, QD
     Route: 065

REACTIONS (1)
  - Disease progression [Unknown]
